FAERS Safety Report 4970786-6 (Version None)
Quarter: 2006Q2

REPORT INFORMATION
  Report Type: 
  Country: None (occurrence: None)
  Receive Date: 20060411
  Receipt Date: 20060411
  Transmission Date: 20061013
  Serious: Yes (Other)
  Sender: FDA-Public Use
  Company Number: None

PATIENT
  Age: 11 Year
  Sex: Male

DRUGS (1)
  1. CORICIDIN HBP COUGH + COLD (CHLORPHENIRAMINE MAL/DEX TABLETS [Suspect]
     Indication: INTENTIONAL DRUG MISUSE
     Dosage: 6 TABS ORAL
     Route: 048
     Dates: start: 20060402, end: 20060402

REACTIONS (2)
  - ABNORMAL BEHAVIOUR [None]
  - DRUG ABUSER [None]
